FAERS Safety Report 5622070-5 (Version None)
Quarter: 2008Q1

REPORT INFORMATION
  Report Type: 
  Country: None (occurrence: None)
  Receive Date: 20080206
  Receipt Date: 20080125
  Transmission Date: 20080703
  Serious: Yes (Other)
  Sender: FDA-Public Use
  Company Number: 2008AP000276

PATIENT
  Age: 30 Year
  Sex: Male

DRUGS (11)
  1. PAROXETINE HCL [Suspect]
     Dosage: 37 MG; QD PO, 20 MG; PO; QD, 60 MG; PO; QD, 50 MG; PO; QD, PO, 37 MG; PO; QD, SYR; PO; QD, 20 MG; QD
     Route: 048
     Dates: start: 20030717, end: 20040827
  2. PAROXETINE HCL [Suspect]
     Dosage: 37 MG; QD PO, 20 MG; PO; QD, 60 MG; PO; QD, 50 MG; PO; QD, PO, 37 MG; PO; QD, SYR; PO; QD, 20 MG; QD
     Route: 048
     Dates: start: 20001120
  3. PAROXETINE HCL [Suspect]
     Dosage: 37 MG; QD PO, 20 MG; PO; QD, 60 MG; PO; QD, 50 MG; PO; QD, PO, 37 MG; PO; QD, SYR; PO; QD, 20 MG; QD
     Route: 048
     Dates: start: 20001120
  4. PAROXETINE HCL [Suspect]
     Dosage: 37 MG; QD PO, 20 MG; PO; QD, 60 MG; PO; QD, 50 MG; PO; QD, PO, 37 MG; PO; QD, SYR; PO; QD, 20 MG; QD
     Route: 048
     Dates: start: 20010601
  5. PAROXETINE HCL [Suspect]
     Dosage: 37 MG; QD PO, 20 MG; PO; QD, 60 MG; PO; QD, 50 MG; PO; QD, PO, 37 MG; PO; QD, SYR; PO; QD, 20 MG; QD
     Route: 048
     Dates: start: 20020117
  6. PAROXETINE HCL [Suspect]
     Dosage: 37 MG; QD PO, 20 MG; PO; QD, 60 MG; PO; QD, 50 MG; PO; QD, PO, 37 MG; PO; QD, SYR; PO; QD, 20 MG; QD
     Route: 048
     Dates: start: 20020221
  7. PAROXETINE HCL [Suspect]
     Dosage: 37 MG; QD PO, 20 MG; PO; QD, 60 MG; PO; QD, 50 MG; PO; QD, PO, 37 MG; PO; QD, SYR; PO; QD, 20 MG; QD
     Route: 048
     Dates: start: 20031010
  8. PAROXETINE HCL [Suspect]
     Dosage: 37 MG; QD PO, 20 MG; PO; QD, 60 MG; PO; QD, 50 MG; PO; QD, PO, 37 MG; PO; QD, SYR; PO; QD, 20 MG; QD
     Route: 048
     Dates: start: 20040827
  9. DOSULEPIN (DOSULEPIN) [Concomitant]
  10. FLUOXETINE HCL [Concomitant]
  11. REBOXETINE (REBOXETINE) [Concomitant]

REACTIONS (4)
  - DIARRHOEA [None]
  - DRUG DEPENDENCE [None]
  - DRUG WITHDRAWAL SYNDROME [None]
  - FUNGAL INFECTION [None]
